FAERS Safety Report 4816568-7 (Version None)
Quarter: 2005Q4

REPORT INFORMATION
  Report Type: 
  Country: None (occurrence: None)
  Receive Date: 20051031
  Receipt Date: 20051031
  Transmission Date: 20060501
  Serious: Yes (Hospitalization)
  Sender: FDA-Public Use
  Company Number: None

PATIENT
  Age: 67 Year
  Sex: Male
  Weight: 127 kg

DRUGS (8)
  1. AMIODARONE 200 MG [Suspect]
     Indication: ATRIAL FIBRILLATION
     Dosage: 200 MG DAILY PO
     Route: 048
     Dates: start: 20050327, end: 20051025
  2. WARFARIN SODIUM [Concomitant]
  3. ASPIRIN [Concomitant]
  4. LISINOPRIL [Concomitant]
  5. FUROSEMIDE [Concomitant]
  6. METOPROLOL [Concomitant]
  7. LIPITOR [Concomitant]
  8. METAMUCIL [Concomitant]

REACTIONS (5)
  - ALANINE AMINOTRANSFERASE INCREASED [None]
  - ASPARTATE AMINOTRANSFERASE INCREASED [None]
  - FALL [None]
  - HEPATOTOXICITY [None]
  - INTERNATIONAL NORMALISED RATIO INCREASED [None]
